FAERS Safety Report 8511630 (Version 2)
Quarter: 2013Q2

REPORT INFORMATION
  Report Type: Spontaneous
  Country: US (occurrence: US)
  Receive Date: 20120413
  Receipt Date: 20130422
  Transmission Date: 20140414
  Serious: No
  Sender: FDA-Public Use
  Company Number: US-ASTRAZENECA-2011SE35860

PATIENT
  Age: 64 Year
  Sex: Female

DRUGS (6)
  1. NEXIUM [Suspect]
     Route: 048
  2. NEXIUM [Suspect]
     Route: 048
  3. PLAVIX [Concomitant]
  4. ASPIRIN [Concomitant]
  5. METFORMIN [Concomitant]
  6. CYMBALTA [Concomitant]

REACTIONS (5)
  - Pain [Unknown]
  - Rheumatoid arthritis [Unknown]
  - Malaise [Unknown]
  - Abdominal pain upper [Unknown]
  - Drug dose omission [Unknown]
